FAERS Safety Report 18221218 (Version 1)
Quarter: 2020Q3

REPORT INFORMATION
  Report Type: Report from Study
  Country: CR (occurrence: CR)
  Receive Date: 20200902
  Receipt Date: 20200902
  Transmission Date: 20201103
  Serious: Yes (Other)
  Sender: FDA-Public Use
  Company Number: NVSC2020CR240491

PATIENT
  Age: 79 Year
  Sex: Female

DRUGS (1)
  1. DIOVAN [Suspect]
     Active Substance: VALSARTAN
     Indication: PRODUCT USED FOR UNKNOWN INDICATION
     Dosage: 320 MG
     Route: 065

REACTIONS (6)
  - Shock [Unknown]
  - Hypoacusis [Unknown]
  - Memory impairment [Unknown]
  - Balance disorder [Unknown]
  - Pneumonia [Unknown]
  - Middle ear disorder [Unknown]
